FAERS Safety Report 5597939-0 (Version None)
Quarter: 2008Q1

REPORT INFORMATION
  Report Type: 
  Country: None (occurrence: None)
  Receive Date: 20080122
  Receipt Date: 20080114
  Transmission Date: 20080703
  Serious: Yes (Other)
  Sender: FDA-Public Use
  Company Number: BR-BAYER-200810596LA

PATIENT
  Age: 0 Hour
  Sex: Male
  Weight: 2.795 kg

DRUGS (1)
  1. YASMIN [Suspect]
     Indication: CONTRACEPTION
     Route: 064
     Dates: start: 20070401, end: 20070510

REACTIONS (1)
  - APGAR SCORE LOW [None]
